FAERS Safety Report 11806437 (Version 1)
Quarter: 2015Q4

REPORT INFORMATION
  Report Type: Spontaneous
  Country: FR (occurrence: FR)
  Receive Date: 20151207
  Receipt Date: 20151207
  Transmission Date: 20160305
  Serious: Yes (Hospitalization)
  Sender: FDA-Public Use
  Company Number: FR-PFIZER INC-2015410721

PATIENT
  Age: 68 Year
  Sex: Male

DRUGS (2)
  1. FLAGYL [Suspect]
     Active Substance: METRONIDAZOLE\METRONIDAZOLE HYDROCHLORIDE
     Indication: SKIN INFECTION
     Dosage: 500 MG, 3X/DAY
     Route: 041
     Dates: start: 20151023, end: 20151026
  2. ZYVOXID [Suspect]
     Active Substance: LINEZOLID
     Indication: SKIN INFECTION
     Dosage: 600 MG, 2X/DAY
     Route: 041
     Dates: start: 20151022, end: 20151025

REACTIONS (4)
  - Disorientation [Recovered/Resolved]
  - Sleep disorder [Recovered/Resolved]
  - Confusional state [Recovered/Resolved]
  - Hallucination [Recovered/Resolved]

NARRATIVE: CASE EVENT DATE: 20151025
